FAERS Safety Report 24255259 (Version 2)
Quarter: 2024Q4

REPORT INFORMATION
  Report Type: Spontaneous
  Country: PH (occurrence: PH)
  Receive Date: 20240827
  Receipt Date: 20241030
  Transmission Date: 20250115
  Serious: Yes (Death, Other)
  Sender: DAIICHI
  Company Number: PH-AstraZeneca-2024A190643

PATIENT
  Age: 38 Year
  Sex: Female
  Weight: 38 kg

DRUGS (1)
  1. TRASTUZUMAB DERUXTECAN [Suspect]
     Active Substance: TRASTUZUMAB DERUXTECAN
     Indication: Breast cancer
     Dosage: 200 MG
     Route: 042
     Dates: start: 20240730

REACTIONS (1)
  - Death [Fatal]
